FAERS Safety Report 20560634 (Version 2)
Quarter: 2022Q2

REPORT INFORMATION
  Report Type: Spontaneous
  Country: AR (occurrence: AR)
  Receive Date: 20220307
  Receipt Date: 20220412
  Transmission Date: 20220720
  Serious: Yes (Other)
  Sender: FDA-Public Use
  Company Number: AR-PFIZER INC-202200320343

PATIENT
  Age: 53 Year
  Sex: Female

DRUGS (1)
  1. ENBREL [Suspect]
     Active Substance: ETANERCEPT
     Indication: Psoriatic arthropathy
     Dosage: 50 MG, WEEKLY
     Route: 065
     Dates: start: 20211029

REACTIONS (5)
  - Blood triglycerides increased [Not Recovered/Not Resolved]
  - Illness [Not Recovered/Not Resolved]
  - COVID-19 [Not Recovered/Not Resolved]
  - Gastrointestinal disorder [Not Recovered/Not Resolved]
  - Bone disorder [Not Recovered/Not Resolved]

NARRATIVE: CASE EVENT DATE: 20220101
